FAERS Safety Report 22273277 (Version 2)
Quarter: 2023Q2

REPORT INFORMATION
  Report Type: Spontaneous
  Country: CA (occurrence: CA)
  Receive Date: 20230502
  Receipt Date: 20230512
  Transmission Date: 20230722
  Serious: Yes (Other)
  Sender: FDA-Public Use
  Company Number: CA-SUN PHARMACEUTICAL INDUSTRIES LTD-2023R1-386365

PATIENT
  Sex: Female

DRUGS (2)
  1. VENLAFAXINE [Suspect]
     Active Substance: VENLAFAXINE HYDROCHLORIDE
     Indication: Menopause
     Dosage: 37.5 MILLIGRAM, DAILY
     Route: 065
     Dates: start: 202302, end: 202303
  2. OXYCODONE [Concomitant]
     Active Substance: OXYCODONE
     Indication: Product used for unknown indication
     Dosage: 5 MG
     Route: 065

REACTIONS (5)
  - Cerebral disorder [Not Recovered/Not Resolved]
  - Headache [Unknown]
  - Trismus [Unknown]
  - Musculoskeletal discomfort [Unknown]
  - Aphasia [Unknown]

NARRATIVE: CASE EVENT DATE: 20230101
